FAERS Safety Report 10398999 (Version 3)
Quarter: 2015Q1

REPORT INFORMATION
  Report Type: Report from Study
  Country: TW (occurrence: TW)
  Receive Date: 20140821
  Receipt Date: 20150226
  Transmission Date: 20150720
  Serious: Yes (Death, Hospitalization)
  Sender: FDA-Public Use
  Company Number: TW-SA-2014SA110681

PATIENT
  Age: 19 Year
  Sex: Male
  Weight: 93 kg

DRUGS (1)
  1. THYMOGLOBULINE [Suspect]
     Active Substance: LAPINE T-LYMPHOCYTE IMMUNE GLOBULIN
     Indication: PRODUCT USED FOR UNKNOWN INDICATION
     Route: 042
     Dates: start: 20101019, end: 20101025

REACTIONS (6)
  - Haematochezia [Not Recovered/Not Resolved]
  - Acute respiratory distress syndrome [Fatal]
  - Septic shock [Fatal]
  - Haematochezia [Fatal]
  - Febrile neutropenia [Fatal]
  - Febrile neutropenia [Not Recovered/Not Resolved]

NARRATIVE: CASE EVENT DATE: 20101020
